FAERS Safety Report 7660158-8 (Version None)
Quarter: 2011Q3

REPORT INFORMATION
  Report Type: 
  Country: None (occurrence: None)
  Receive Date: 20110805
  Receipt Date: 20110728
  Transmission Date: 20111222
  Serious: Yes (Other)
  Sender: FDA-Public Use
  Company Number: PHHY2011US68362

PATIENT
  Sex: Female

DRUGS (2)
  1. RECLAST [Suspect]
     Dosage: UNK UKN, UNK
     Route: 042
  2. RECLAST [Suspect]
     Dosage: UNK UKN, UNK
     Route: 042

REACTIONS (1)
  - OSTEONECROSIS OF JAW [None]
